FAERS Safety Report 17191628 (Version 1)
Quarter: 2019Q4

REPORT INFORMATION
  Report Type: Spontaneous
  Country: CN (occurrence: CN)
  Receive Date: 20191223
  Receipt Date: 20191223
  Transmission Date: 20200122
  Serious: Yes (Other)
  Sender: FDA-Public Use
  Company Number: CN-PFIZER INC-2019546413

PATIENT
  Age: 55 Year
  Sex: Male

DRUGS (3)
  1. QING WEI KE [DECITABINE] [Suspect]
     Active Substance: DECITABINE
     Indication: BONE MARROW TRANSPLANT
     Dosage: 50 MG, 1X/DAY
     Route: 041
     Dates: start: 20191120, end: 20191120
  2. CYTOSAR [Suspect]
     Active Substance: CYTARABINE
     Indication: BONE MARROW TRANSPLANT
     Dosage: 2500 MG, 1X/DAY
     Route: 041
     Dates: start: 20191120, end: 20191123
  3. AZACITIDINE. [Suspect]
     Active Substance: AZACITIDINE
     Indication: BONE MARROW TRANSPLANT
     Dosage: 100MG-10D

REACTIONS (5)
  - Abdominal pain [Unknown]
  - Mouth ulceration [Unknown]
  - Gastrointestinal infection [Unknown]
  - Vomiting [Unknown]
  - Diarrhoea [Unknown]

NARRATIVE: CASE EVENT DATE: 20191205
